FAERS Safety Report 9639519 (Version 3)
Quarter: 2014Q1

REPORT INFORMATION
  Report Type: Spontaneous
  Country: CA (occurrence: CA)
  Receive Date: 20131023
  Receipt Date: 20140117
  Transmission Date: 20141002
  Serious: Yes (Death, Hospitalization, Other)
  Sender: FDA-Public Use
  Company Number: CA-AMGEN-CANSP2013073695

PATIENT
  Age: 98 Year
  Sex: Male
  Weight: 63.49 kg

DRUGS (4)
  1. PROLIA [Suspect]
     Indication: OSTEOPOROSIS
     Dosage: 60 MG, Q6MO
     Route: 058
     Dates: start: 201307
  2. BISOPROLOL [Concomitant]
     Indication: ATRIAL FIBRILLATION
     Dosage: 25 MG, QD
     Route: 048
     Dates: start: 2010
  3. VITAMIN D3 [Concomitant]
     Indication: OSTEOPOROSIS
     Dosage: 10000 UNITS
     Route: 048
     Dates: start: 201307
  4. LEVOFLOXACIN [Concomitant]
     Indication: URINARY TRACT INFECTION
     Dosage: 500 MG, QD
     Route: 048
     Dates: start: 20131004

REACTIONS (13)
  - Lower respiratory tract infection [Fatal]
  - Prostate cancer [Fatal]
  - Pneumonia [Fatal]
  - Metastases to bone [Unknown]
  - Tetany [Unknown]
  - Hypercalcaemia [Unknown]
  - Transurethral prostatectomy [Unknown]
  - Depression [Unknown]
  - Hypoaesthesia [Unknown]
  - Muscle twitching [Unknown]
  - Delirium [Unknown]
  - Electrocardiogram QT prolonged [Unknown]
  - Blood calcium decreased [Unknown]
